FAERS Safety Report 6095515-7 (Version None)
Quarter: 2009Q1

REPORT INFORMATION
  Report Type: 
  Country: None (occurrence: None)
  Receive Date: 20090227
  Receipt Date: 20080417
  Transmission Date: 20090719
  Serious: No
  Sender: FDA-Public Use
  Company Number: A0723427A

PATIENT
  Age: 11 Year
  Sex: Female

DRUGS (4)
  1. LAMICTAL [Suspect]
     Indication: EPILEPSY
     Dosage: 100MG PER DAY
     Route: 048
     Dates: start: 20080327, end: 20080414
  2. DEPAKOTE ER [Concomitant]
  3. GEODON [Concomitant]
  4. PREDNISONE [Concomitant]

REACTIONS (4)
  - AGITATION [None]
  - PYREXIA [None]
  - RASH ERYTHEMATOUS [None]
  - VOMITING PROJECTILE [None]
